FAERS Safety Report 4827777-5 (Version None)
Quarter: 2005Q4

REPORT INFORMATION
  Report Type: 
  Country: None (occurrence: None)
  Receive Date: 20051110
  Receipt Date: 20051107
  Transmission Date: 20060501
  Serious: Yes (Other)
  Sender: FDA-Public Use
  Company Number: 005990

PATIENT
  Sex: Female

DRUGS (5)
  1. MEDROXYPROGESTERONE ACETATE [Suspect]
     Dosage: ORAL
     Route: 048
     Dates: start: 19950101, end: 20020101
  2. PREMARIN [Suspect]
     Dosage: ORAL
     Route: 048
     Dates: start: 19950101, end: 20020101
  3. PROVERA [Suspect]
     Dosage: ORAL
     Route: 048
     Dates: start: 19950101, end: 20020101
  4. PREMPRO [Suspect]
     Dosage: ORAL
     Route: 048
     Dates: start: 19950101, end: 20020101
  5. CLIMARA [Suspect]
     Dates: start: 19950101, end: 20020101

REACTIONS (1)
  - BREAST CANCER FEMALE [None]
